FAERS Safety Report 7220431-4 (Version None)
Quarter: 2010Q4

REPORT INFORMATION
  Report Type: 
  Country: None (occurrence: None)
  Receive Date: 20101229
  Receipt Date: 20101215
  Transmission Date: 20110411
  Serious: Yes (Other)
  Sender: FDA-Public Use
  Company Number: CO-JNJFOC-20100703277

PATIENT
  Age: 73 Year

DRUGS (1)
  1. DACOGEN [Suspect]
     Indication: MYELODYSPLASTIC SYNDROME
     Dosage: 35 MG, INTRAVENOUS
     Route: 042
     Dates: start: 20100628, end: 20100702

REACTIONS (1)
  - VENOUS THROMBOSIS LIMB [None]
